FAERS Safety Report 5068210-0 (Version None)
Quarter: 2006Q3

REPORT INFORMATION
  Report Type: 
  Country: None (occurrence: None)
  Receive Date: 20060802
  Receipt Date: 20050603
  Transmission Date: 20061208
  Serious: No
  Sender: FDA-Public Use
  Company Number: US-BRISTOL-MYERS SQUIBB COMPANY-12993341

PATIENT
  Age: 73 Year
  Sex: Male

DRUGS (7)
  1. COUMADIN [Suspect]
  2. AMBIEN [Concomitant]
  3. DIGITEK [Concomitant]
  4. FLOMAX [Concomitant]
  5. FUROSEMIDE [Concomitant]
  6. NYSTATIN [Concomitant]
  7. POTASSIUM [Concomitant]

REACTIONS (1)
  - DYSGEUSIA [None]
